FAERS Safety Report 16845184 (Version 5)
Quarter: 2020Q1

REPORT INFORMATION
  Report Type: Spontaneous
  Country: US (occurrence: US)
  Receive Date: 20190924
  Receipt Date: 20200330
  Transmission Date: 20200409
  Serious: No
  Sender: FDA-Public Use
  Company Number: US-PFIZER INC-2019412251

PATIENT
  Age: 69 Year
  Sex: Female
  Weight: 90.72 kg

DRUGS (4)
  1. SKELAXIN [Suspect]
     Active Substance: METAXALONE
     Indication: MYALGIA
     Dosage: 400 MG, UNK [SUALLY 800 SO I HAVE A 400 MG 1/2 A TABLET]
  2. SKELAXIN [Suspect]
     Active Substance: METAXALONE
     Indication: MUSCLE TIGHTNESS
     Dosage: UNK (CUTTING IT IN HALF)/I^M DOWN TO 1/2 A PILL
  3. SKELAXIN [Suspect]
     Active Substance: METAXALONE
     Indication: MUSCLE SPASMS
     Dosage: 800 MG, 3X/DAY
     Route: 048
  4. BUSPIRONE [Concomitant]
     Active Substance: BUSPIRONE HYDROCHLORIDE
     Indication: DEPRESSION
     Dosage: 15 MG, UNK (HALF A TABLET TWICE A DAY)

REACTIONS (2)
  - Overweight [Unknown]
  - Intentional product misuse [Unknown]
